FAERS Safety Report 11717527 (Version 1)
Quarter: 2015Q4

REPORT INFORMATION
  Report Type: Spontaneous
  Country: US (occurrence: US)
  Receive Date: 20151110
  Receipt Date: 20151110
  Transmission Date: 20160304
  Serious: Yes (Other)
  Sender: FDA-Public Use
  Company Number: US-JNJCP-30000311733

PATIENT
  Sex: Female
  Weight: 59 kg

DRUGS (1)
  1. CLEAN AND CLEAR ADVANTAGE ACNE SPOT TREATMENT [Suspect]
     Active Substance: SALICYLIC ACID
     Indication: REMOVAL OF INERT MATTER FROM SKIN OR SUBCUTANEOUS TISSUE
     Dosage: QUARTER SIZE AMOUNT ONCE
     Route: 061
     Dates: start: 20151026

REACTIONS (2)
  - Application site urticaria [Recovering/Resolving]
  - Application site pain [Recovering/Resolving]

NARRATIVE: CASE EVENT DATE: 20151026
